FAERS Safety Report 24705697 (Version 1)
Quarter: 2024Q4

REPORT INFORMATION
  Report Type: Spontaneous
  Country: US (occurrence: US)
  Receive Date: 20241206
  Receipt Date: 20241206
  Transmission Date: 20250114
  Serious: No
  Sender: GREER
  Company Number: US-STALCOR-2024-AER-02330

PATIENT
  Sex: Male

DRUGS (1)
  1. PALFORZIA [Suspect]
     Active Substance: PEANUT
     Indication: Food allergy
     Dosage: 300MG: MAINTENANCE:  MIX CONTENTS OF ONE SACHET WELL WITH SEMISOLID FOOD AS DIRECTED AND CONSUME ONC
     Route: 048

REACTIONS (5)
  - Nasopharyngitis [Unknown]
  - Illness [Unknown]
  - Paraesthesia [Unknown]
  - Therapy interrupted [Unknown]
  - Product dose omission issue [Unknown]
